FAERS Safety Report 15894958 (Version 1)
Quarter: 2019Q1

REPORT INFORMATION
  Report Type: Spontaneous
  Country: US (occurrence: US)
  Receive Date: 20190110
  Receipt Date: 20190110
  Transmission Date: 20190417
  Serious: No
  Sender: FDA-Public Use
  Company Number: None

PATIENT

DRUGS (2)
  1. CARDIOGEN-82 [Concomitant]
     Active Substance: RUBIDIUM CHLORIDE RB-82
  2. CARDIOGEN-82 [Suspect]
     Active Substance: RUBIDIUM CHLORIDE RB-82
     Indication: COMPUTERISED TOMOGRAM
     Dates: start: 20181215, end: 20181217

REACTIONS (1)
  - Product preparation error [None]

NARRATIVE: CASE EVENT DATE: 20181215
